FAERS Safety Report 20841505 (Version 1)
Quarter: 2022Q2

REPORT INFORMATION
  Report Type: Spontaneous
  Country: US (occurrence: US)
  Receive Date: 20220518
  Receipt Date: 20220518
  Transmission Date: 20220721
  Serious: Yes (Hospitalization, Other)
  Sender: FDA-Public Use
  Company Number: US-BRISTOL-MYERS SQUIBB COMPANY-2022-023472

PATIENT
  Age: 63 Year
  Sex: Male
  Weight: 72.57 kg

DRUGS (1)
  1. SPRYCEL [Suspect]
     Active Substance: DASATINIB
     Indication: Leukaemia
     Dosage: DOSE : 100 MG;     FREQ : ^1 TABLET BY MOUTH A DAY^
     Route: 048
     Dates: start: 2020, end: 20220114

REACTIONS (1)
  - Pulmonary oedema [Unknown]
